FAERS Safety Report 6292098-3 (Version None)
Quarter: 2009Q3

REPORT INFORMATION
  Report Type: 
  Country: None (occurrence: None)
  Receive Date: 20090731
  Receipt Date: 20090723
  Transmission Date: 20100115
  Serious: Yes (Hospitalization, Disabling)
  Sender: FDA-Public Use
  Company Number: US-ELI_LILLY_AND_COMPANY-US200907006813

PATIENT
  Sex: Female
  Weight: 135.15 kg

DRUGS (10)
  1. BYETTA [Suspect]
     Indication: TYPE 2 DIABETES MELLITUS
     Dosage: 5 UG, 2/D
     Route: 058
     Dates: start: 20080901, end: 20081201
  2. BYETTA [Suspect]
     Dosage: 10 UG, 2/D
     Route: 058
     Dates: start: 20081201
  3. CYMBALTA [Concomitant]
     Indication: DEPRESSION
     Dosage: 60 MG, DAILY (1/D)
     Route: 048
     Dates: start: 20090601
  4. LANTUS [Concomitant]
     Indication: TYPE 2 DIABETES MELLITUS
     Dosage: 90 U, 2/D
  5. HUMULIN /00646001/ [Concomitant]
     Dosage: UNK, OTHER
  6. XANAX [Concomitant]
     Indication: ANXIETY
     Dosage: UNK, UNKNOWN
     Dates: start: 19890101
  7. LISINOPRIL [Concomitant]
     Indication: HYPERTENSION
     Dosage: UNK, UNKNOWN
  8. TRAZODONE HCL [Concomitant]
     Indication: SLEEP DISORDER THERAPY
     Dosage: UNK, UNKNOWN
  9. ZOLOFT [Concomitant]
     Indication: DEPRESSION
     Dosage: 200 MG, DAILY (1/D)
     Route: 048
     Dates: start: 19990101, end: 20090601
  10. LIPITOR [Concomitant]
     Indication: BLOOD CHOLESTEROL INCREASED
     Dosage: UNK, UNKNOWN
     Dates: start: 19990101

REACTIONS (5)
  - BLOOD GLUCOSE DECREASED [None]
  - BLOOD GLUCOSE INCREASED [None]
  - OFF LABEL USE [None]
  - SUICIDE ATTEMPT [None]
  - WEIGHT DECREASED [None]
